APPROVED DRUG PRODUCT: FOSINOPRIL SODIUM
Active Ingredient: FOSINOPRIL SODIUM
Strength: 10MG
Dosage Form/Route: TABLET;ORAL
Application: A205670 | Product #001 | TE Code: AB
Applicant: PRINSTON PHARMACEUTICAL INC
Approved: Aug 29, 2016 | RLD: No | RS: No | Type: RX